FAERS Safety Report 8024671-6 (Version None)
Quarter: 2012Q1

REPORT INFORMATION
  Report Type: 
  Country: None (occurrence: None)
  Receive Date: 20120103
  Receipt Date: 20111222
  Transmission Date: 20120608
  Serious: Yes (Death, Hospitalization)
  Sender: FDA-Public Use
  Company Number: WAES 1112USA03047

PATIENT
  Age: 78 Year
  Sex: Male

DRUGS (24)
  1. PURSENNID (SENNA) [Concomitant]
  2. ALDACTAZIDE [Concomitant]
  3. LACTEC G [Concomitant]
  4. LASIX [Concomitant]
  5. LOXONIN [Concomitant]
  6. RESCALMIN [Concomitant]
  7. MANNIGEN [Concomitant]
  8. ZOMETA [Concomitant]
  9. DECADRON [Suspect]
     Dosage: 4 MG/BID/PO, 2 MG/BID/PO, 1.5 MG/BID/PO, 1 MG/DAILY/PO
     Route: 048
     Dates: start: 20110823, end: 20110825
  10. DECADRON [Suspect]
     Dosage: 4 MG/BID/PO, 2 MG/BID/PO, 1.5 MG/BID/PO, 1 MG/DAILY/PO
     Route: 048
     Dates: start: 20111005, end: 20111020
  11. DECADRON [Suspect]
     Dosage: 4 MG/BID/PO, 2 MG/BID/PO, 1.5 MG/BID/PO, 1 MG/DAILY/PO
     Route: 048
     Dates: start: 20110902, end: 20110908
  12. DECADRON [Suspect]
     Dosage: 4 MG/BID/PO, 2 MG/BID/PO, 1.5 MG/BID/PO, 1 MG/DAILY/PO
     Route: 048
     Dates: start: 20110909, end: 20111004
  13. DECADRON [Suspect]
     Dosage: 4 MG/BID/PO, 2 MG/BID/PO, 1.5 MG/BID/PO, 1 MG/DAILY/PO
     Route: 048
     Dates: start: 20110826, end: 20110901
  14. DECADRON [Suspect]
     Dosage: 19.R MA/TTD/IV, 18.5 MG/TID/IV, 13.2 MG/TID/IV, 9.9 MG/TID/IV, 9.9 MG/BID/IV
     Route: 042
     Dates: start: 20110811, end: 20110813
  15. DECADRON [Suspect]
     Dosage: 19.R MA/TTD/IV, 18.5 MG/TID/IV, 13.2 MG/TID/IV, 9.9 MG/TID/IV, 9.9 MG/BID/IV
     Route: 042
     Dates: start: 20110814, end: 20110816
  16. DECADRON [Suspect]
     Dosage: 19.R MA/TTD/IV, 18.5 MG/TID/IV, 13.2 MG/TID/IV, 9.9 MG/TID/IV, 9.9 MG/BID/IV
     Route: 042
     Dates: start: 20110817, end: 20110819
  17. DECADRON [Suspect]
     Dosage: 19.R MA/TTD/IV, 18.5 MG/TID/IV, 13.2 MG/TID/IV, 9.9 MG/TID/IV, 9.9 MG/BID/IV
     Route: 042
     Dates: start: 20110808, end: 20110810
  18. DECADRON [Suspect]
     Dosage: 19.R MA/TTD/IV, 18.5 MG/TID/IV, 13.2 MG/TID/IV, 9.9 MG/TID/IV, 9.9 MG/BID/IV
     Route: 042
     Dates: start: 20110820, end: 20110822
  19. FENTORA [Concomitant]
  20. MG OXIDE [Concomitant]
  21. NORVASC [Concomitant]
  22. TEMSIROLIMUS [Suspect]
     Dosage: 15 MG/WKY/IV
     Route: 042
     Dates: start: 20111014, end: 20111021
  23. OXYCONTIN [Concomitant]
  24. RISPERDAL [Concomitant]

REACTIONS (3)
  - PNEUMOCYSTIS JIROVECI PNEUMONIA [None]
  - RESTLESSNESS [None]
  - BLOOD LACTATE DEHYDROGENASE INCREASED [None]
